FAERS Safety Report 8426197-4 (Version None)
Quarter: 2012Q2

REPORT INFORMATION
  Report Type: 
  Country: None (occurrence: None)
  Receive Date: 20120611
  Receipt Date: 20110725
  Transmission Date: 20120825
  Serious: No
  Sender: FDA-Public Use
  Company Number: US-MYLANLABS-2011S1015571

PATIENT
  Age: 69 Year
  Sex: Male

DRUGS (2)
  1. CYCLOBENZAPRINE HCL [Suspect]
     Indication: LIGAMENT SPRAIN
     Route: 048
     Dates: start: 20110705, end: 20110720
  2. TRAMADOL HYDROCHLORIDE [Suspect]
     Indication: LIGAMENT SPRAIN
     Route: 048
     Dates: start: 20110705, end: 20110720

REACTIONS (2)
  - DYSGEUSIA [None]
  - AGEUSIA [None]
